FAERS Safety Report 8958163 (Version 2)
Quarter: 2013Q1

REPORT INFORMATION
  Report Type: Spontaneous
  Country: US (occurrence: US)
  Receive Date: 20121211
  Receipt Date: 20130226
  Transmission Date: 20140127
  Serious: Yes (Other)
  Sender: FDA-Public Use
  Company Number: US-JNJFOC-20121202356

PATIENT
  Age: 56 None
  Sex: Female
  Weight: 105.69 kg

DRUGS (3)
  1. REMICADE [Suspect]
     Indication: CROHN^S DISEASE
     Dosage: 3RD DOSE??FREQUENCY: 0, 2, 6 WEEKS
     Route: 042
     Dates: start: 20120928
  2. REMICADE [Suspect]
     Indication: CROHN^S DISEASE
     Dosage: 4TH INFUSION
     Route: 042
     Dates: start: 20121121
  3. REMICADE [Suspect]
     Indication: CROHN^S DISEASE
     Dosage: FREQUENCY: 0, 2, 6 WEEKS
     Route: 042
     Dates: start: 20120817

REACTIONS (5)
  - Psoriasis [Recovering/Resolving]
  - Rheumatoid arthritis [Recovering/Resolving]
  - Hypoaesthesia [Unknown]
  - Paraesthesia [Not Recovered/Not Resolved]
  - Pain [Recovering/Resolving]
